FAERS Safety Report 10046386 (Version 1)
Quarter: 2014Q1

REPORT INFORMATION
  Report Type: Spontaneous
  Country: FR (occurrence: FR)
  Receive Date: 20140331
  Receipt Date: 20140331
  Transmission Date: 20141002
  Serious: Yes (Other)
  Sender: FDA-Public Use
  Company Number: FR-009507513-1403FRA010339

PATIENT
  Age: 54 Year
  Sex: Male

DRUGS (3)
  1. ISENTRESS [Suspect]
     Dosage: 1 DF, BID
     Route: 048
     Dates: start: 20100920
  2. TRUVADA [Suspect]
     Indication: HIV INFECTION
     Dosage: 1 DF, QD
     Route: 048
     Dates: start: 20100920
  3. CELSENTRI [Suspect]
     Indication: HIV INFECTION
     Dosage: 1 DF, BID
     Route: 048
     Dates: start: 20100920

REACTIONS (4)
  - Hepatic steatosis [Unknown]
  - Dyslipidaemia [Unknown]
  - Lipodystrophy acquired [Unknown]
  - Hyperglycaemia [Unknown]
